FAERS Safety Report 6793233-0 (Version None)
Quarter: 2010Q2

REPORT INFORMATION
  Report Type: 
  Country: None (occurrence: None)
  Receive Date: 20100624
  Receipt Date: 20090902
  Transmission Date: 20101027
  Serious: Yes (Death)
  Sender: FDA-Public Use
  Company Number: US-MYLANLABS-2009S1015755

PATIENT
  Age: 61 Year
  Sex: Male

DRUGS (8)
  1. CLOZAPINE [Suspect]
     Indication: BIPOLAR DISORDER
     Route: 048
  2. LUPRON [Concomitant]
     Indication: IMPULSE-CONTROL DISORDER
     Route: 030
  3. CLONAZEPAM [Concomitant]
  4. TRAZODONE HYDROCHLORIDE [Concomitant]
  5. DIPHENHYDRAMINE [Concomitant]
  6. BENZTROPINE MESYLATE [Concomitant]
  7. CALCIUM CARBONATE [Concomitant]
  8. ZANTAC [Concomitant]

REACTIONS (1)
  - RENAL CANCER [None]
